FAERS Safety Report 21416920 (Version 7)
Quarter: 2023Q2

REPORT INFORMATION
  Report Type: Other
  Country: CA (occurrence: None)
  Receive Date: 20221006
  Receipt Date: 20230529
  Transmission Date: 20230721
  Serious: Yes (Hospitalization, Other)
  Sender: FDA-Public Use
  Company Number: CA-ROCHE-3141629

PATIENT
  Sex: Female
  Weight: 60 kg

DRUGS (22)
  1. ACTEMRA [Suspect]
     Active Substance: TOCILIZUMAB
     Indication: Rheumatoid arthritis
     Dosage: DRUG DOSE FIRST ADMINISTERED IS 162 MG MILLIGRAM(S)MOREDOSAGEINFO IS ON HOLD
     Route: 058
     Dates: start: 20220628, end: 2022
  2. ACTEMRA [Suspect]
     Active Substance: TOCILIZUMAB
     Indication: Rheumatoid arthritis
     Route: 042
     Dates: start: 20221005
  3. ACTEMRA [Suspect]
     Active Substance: TOCILIZUMAB
     Route: 042
     Dates: start: 20220628, end: 2022
  4. METHOTREXATE [Suspect]
     Active Substance: METHOTREXATE
     Indication: Product used for unknown indication
     Route: 065
  5. RINVOQ [Suspect]
     Active Substance: UPADACITINIB
     Indication: Product used for unknown indication
     Route: 065
  6. AMLODIPINE [Concomitant]
     Active Substance: AMLODIPINE BESYLATE
  7. CALCIUM CARBONATE\CHOLECALCIFEROL [Concomitant]
     Active Substance: CALCIUM CARBONATE\CHOLECALCIFEROL
  8. CELECOXIB [Concomitant]
     Active Substance: CELECOXIB
  9. DIOVAN [Concomitant]
     Active Substance: VALSARTAN
  10. FOLIC ACID [Concomitant]
     Active Substance: FOLIC ACID
  11. JUBLIA [Concomitant]
     Active Substance: EFINACONAZOLE
  12. ORENCIA [Concomitant]
     Active Substance: ABATACEPT
  13. PREDNISONE [Concomitant]
     Active Substance: PREDNISONE
  14. DIPHENHYDRAMINE HYDROCHLORIDE [Concomitant]
     Active Substance: DIPHENHYDRAMINE HYDROCHLORIDE
  15. ACETAMINOPHEN [Concomitant]
     Active Substance: ACETAMINOPHEN
  16. METHYLPREDNISOLONE [Concomitant]
     Active Substance: METHYLPREDNISOLONE
  17. ARAVA [Concomitant]
     Active Substance: LEFLUNOMIDE
  18. CELEBREX [Concomitant]
     Active Substance: CELECOXIB
  19. ACTONEL [Concomitant]
     Active Substance: RISEDRONATE SODIUM
  20. AZITHROMYCIN [Concomitant]
     Active Substance: AZITHROMYCIN
  21. ETHAMBUTOL [Concomitant]
     Active Substance: ETHAMBUTOL HYDROCHLORIDE
  22. RIFAMPIN [Concomitant]
     Active Substance: RIFAMPIN

REACTIONS (46)
  - Atypical mycobacterial lower respiratory tract infection [Unknown]
  - Bone disorder [Unknown]
  - Pain [Unknown]
  - Gait disturbance [Not Recovered/Not Resolved]
  - Swelling [Unknown]
  - Arthralgia [Not Recovered/Not Resolved]
  - Inflammation [Not Recovered/Not Resolved]
  - Blood pressure increased [Unknown]
  - Paraesthesia [Unknown]
  - Nasopharyngitis [Unknown]
  - Joint swelling [Not Recovered/Not Resolved]
  - Blood pressure fluctuation [Unknown]
  - Paraesthesia [Unknown]
  - Peripheral swelling [Recovering/Resolving]
  - Arthropathy [Not Recovered/Not Resolved]
  - Onychomycosis [Not Recovered/Not Resolved]
  - Osteoarthritis [Not Recovered/Not Resolved]
  - Femur fracture [Unknown]
  - Drug ineffective [Not Recovered/Not Resolved]
  - Dry mouth [Not Recovered/Not Resolved]
  - Postoperative wound infection [Recovered/Resolved]
  - Intervertebral disc degeneration [Unknown]
  - Blood pressure systolic abnormal [Unknown]
  - Product use issue [Unknown]
  - Sciatica [Unknown]
  - Heart rate decreased [Unknown]
  - Blood pressure systolic increased [Unknown]
  - Rheumatoid arthritis [Unknown]
  - Aphthous ulcer [Unknown]
  - Arthropathy [Unknown]
  - Nausea [Unknown]
  - Blood pressure increased [Unknown]
  - Arthritis [Unknown]
  - Rotator cuff syndrome [Unknown]
  - Back pain [Unknown]
  - Drug hypersensitivity [Unknown]
  - Mouth ulceration [Unknown]
  - Aspartate aminotransferase increased [Unknown]
  - Haemoglobin decreased [Unknown]
  - Rheumatoid factor positive [Unknown]
  - Osteogenesis imperfecta [Unknown]
  - Fracture pain [Recovered/Resolved]
  - Anti-cyclic citrullinated peptide antibody positive [Unknown]
  - Weight increased [Unknown]
  - Pneumonia bacterial [Unknown]
  - Immunodeficiency [Unknown]
